FAERS Safety Report 7401747-5 (Version None)
Quarter: 2011Q1

REPORT INFORMATION
  Report Type: 
  Country: None (occurrence: None)
  Receive Date: 20110301
  Receipt Date: 20100622
  Transmission Date: 20110831
  Serious: Yes (Other)
  Sender: FDA-Public Use
  Company Number: US-JNJFOC-20100700667

PATIENT
  Sex: Female

DRUGS (2)
  1. ANTIBIOTIC (ANTIBIOTICS) [Concomitant]
  2. CONCENTRATED MOTRIN INFANTS DROPS [Suspect]
     Indication: INFLUENZA LIKE ILLNESS
     Dosage: ORAL
     Route: 048

REACTIONS (3)
  - DIARRHOEA [None]
  - HAEMATOCHEZIA [None]
  - PRODUCT QUALITY ISSUE [None]
